FAERS Safety Report 6505273-7 (Version None)
Quarter: 2009Q4

REPORT INFORMATION
  Report Type: 
  Country: None (occurrence: None)
  Receive Date: 20091218
  Receipt Date: 20091211
  Transmission Date: 20100525
  Serious: Yes (Other)
  Sender: FDA-Public Use
  Company Number: US-ALLERGAN-0917068US

PATIENT
  Sex: Female

DRUGS (3)
  1. ACUVAIL [Suspect]
     Indication: POSTOPERATIVE CARE
     Dosage: 1 GTT, SINGLE
     Route: 047
     Dates: start: 20091209, end: 20091209
  2. ZYMAR [Concomitant]
  3. PRED FORTE [Concomitant]

REACTIONS (1)
  - CORNEAL DISORDER [None]
